FAERS Safety Report 13454375 (Version 1)
Quarter: 2017Q2

REPORT INFORMATION
  Report Type: Spontaneous
  Country: US (occurrence: US)
  Receive Date: 20170418
  Receipt Date: 20170418
  Transmission Date: 20170830
  Serious: No
  Sender: FDA-Public Use
  Company Number: US-ALLERGAN-1706174US

PATIENT
  Age: 76 Year
  Sex: Female

DRUGS (1)
  1. LUMIGAN [Suspect]
     Active Substance: BIMATOPROST
     Indication: INTRAOCULAR PRESSURE INCREASED
     Dosage: 2 GTT, QHS
     Route: 047
     Dates: start: 20170213

REACTIONS (5)
  - Inappropriate schedule of drug administration [Unknown]
  - Eye pain [Unknown]
  - Product physical consistency issue [Unknown]
  - Eye irritation [Unknown]
  - Abnormal sensation in eye [Unknown]

NARRATIVE: CASE EVENT DATE: 2017
